FAERS Safety Report 12551483 (Version 1)
Quarter: 2016Q3

REPORT INFORMATION
  Report Type: Spontaneous
  Country: FR (occurrence: FR)
  Receive Date: 20160713
  Receipt Date: 20160713
  Transmission Date: 20161109
  Serious: Yes (Other)
  Sender: FDA-Public Use
  Company Number: FR-ROCHE-1772797

PATIENT
  Age: 75 Year
  Sex: Female
  Weight: 74 kg

DRUGS (6)
  1. FASTURTEC [Concomitant]
     Active Substance: RASBURICASE
  2. GAZYVARO [Suspect]
     Active Substance: OBINUTUZUMAB
     Indication: CHRONIC LYMPHOCYTIC LEUKAEMIA
     Dosage: DAY 1 OF THE FIRST COURSE
     Route: 041
     Dates: start: 20160531
  3. MORPHINE [Concomitant]
     Active Substance: MORPHINE
  4. GAZYVARO [Suspect]
     Active Substance: OBINUTUZUMAB
     Dosage: DAY 2
     Route: 041
  5. GAZYVARO [Suspect]
     Active Substance: OBINUTUZUMAB
     Dosage: DAY 3
     Route: 041
  6. PARACETAMOL [Concomitant]
     Active Substance: ACETAMINOPHEN

REACTIONS (4)
  - Blood pressure decreased [Recovered/Resolved]
  - Pyrexia [Recovered/Resolved]
  - Oxygen saturation decreased [Recovered/Resolved]
  - Diarrhoea [Recovered/Resolved]

NARRATIVE: CASE EVENT DATE: 20160531
